FAERS Safety Report 8445428-8 (Version None)
Quarter: 2012Q2

REPORT INFORMATION
  Report Type: 
  Country: None (occurrence: None)
  Receive Date: 20120323
  Receipt Date: 20111215
  Transmission Date: 20120825
  Serious: Yes (Hospitalization)
  Sender: FDA-Public Use
  Company Number: 163-21880-11110038

PATIENT

DRUGS (1)
  1. REVLIMID [Suspect]
     Indication: MULTIPLE MYELOMA
     Dosage: 5 MG, 3X PER WEEK AFTER DIALYSIS,  PO
     Route: 048
     Dates: start: 20110801

REACTIONS (3)
  - BLOOD PRESSURE INCREASED [None]
  - ABDOMINAL DISTENSION [None]
  - CONSTIPATION [None]
